FAERS Safety Report 7843676-9 (Version None)
Quarter: 2011Q4

REPORT INFORMATION
  Report Type: 
  Country: None (occurrence: None)
  Receive Date: 20111025
  Receipt Date: 20111014
  Transmission Date: 20120403
  Serious: Yes (Hospitalization, Disabling, Other)
  Sender: FDA-Public Use
  Company Number: US-ACTELION-A-US2011-54848

PATIENT

DRUGS (12)
  1. GABAPENTIN [Concomitant]
  2. LEVOTHYROXINE SODIUM [Concomitant]
  3. AMBRISENTAN [Concomitant]
  4. AMITRIPTYLINE HCL [Concomitant]
  5. FLOLAN [Suspect]
  6. ENALAPRIL MALEATE [Concomitant]
  7. HYDRODIURIL [Concomitant]
  8. NOVOLOG [Concomitant]
  9. ADCIRCA [Concomitant]
  10. EPOPROSTENOL SODIUM [Suspect]
     Indication: PULMONARY ARTERIAL HYPERTENSION
     Dosage: 17.5 NG/KG, PER MIN
     Route: 042
     Dates: start: 20110915, end: 20111004
  11. SILDENAFIL [Concomitant]
  12. SPIRONOLACTONE [Concomitant]

REACTIONS (3)
  - EYE SWELLING [None]
  - EAR INFECTION [None]
  - DEAFNESS [None]
